FAERS Safety Report 4698521-X (Version None)
Quarter: 2005Q2

REPORT INFORMATION
  Report Type: 
  Country: None (occurrence: None)
  Receive Date: 20050622
  Receipt Date: 20050611
  Transmission Date: 20051028
  Serious: Yes (Hospitalization, Other)
  Sender: FDA-Public Use
  Company Number: 2004094337

PATIENT
  Age: 69 Year
  Sex: Female

DRUGS (6)
  1. CELEBREX [Suspect]
     Indication: ARTHRITIS
     Dosage: 200 MG (100 MG, 2 IN 1 D) ORAL
     Route: 048
     Dates: start: 20000301, end: 20020301
  2. CLONIDINE [Concomitant]
  3. SYNTHROID [Concomitant]
  4. LASIX [Concomitant]
  5. ZANAFLEX [Concomitant]
  6. DARVOCET (DEXTROPROPOXYPHENE NAPSILATE, PARACETAMOL) [Concomitant]

REACTIONS (5)
  - DEHYDRATION [None]
  - DIZZINESS [None]
  - EUSTACHIAN TUBE DYSFUNCTION [None]
  - HYPERSENSITIVITY [None]
  - RENAL FAILURE [None]
